FAERS Safety Report 5875780-9 (Version None)
Quarter: 2008Q3

REPORT INFORMATION
  Report Type: 
  Country: None (occurrence: None)
  Receive Date: 20080908
  Receipt Date: 20080825
  Transmission Date: 20090109
  Serious: Yes (Hospitalization, Other)
  Sender: FDA-Public Use
  Company Number: 2008BI017211

PATIENT
  Age: 59 Year
  Sex: Female

DRUGS (12)
  1. AVONEX [Suspect]
     Indication: MULTIPLE SCLEROSIS
     Dosage: 30 UG; QW; IM
     Route: 030
     Dates: start: 20071101
  2. NORVASC [Concomitant]
  3. LIPITOR [Concomitant]
  4. K-DUR [Concomitant]
  5. AMARYL [Concomitant]
  6. TRILEPTAL [Concomitant]
  7. ASPIRIN [Concomitant]
  8. MAXZIDE [Concomitant]
  9. SYNTHROID [Concomitant]
  10. GLUCOPHAGE [Concomitant]
  11. MONOPRIL [Concomitant]
  12. XANAX [Concomitant]

REACTIONS (3)
  - ANGINA UNSTABLE [None]
  - CORONARY ARTERY OCCLUSION [None]
  - LEFT VENTRICULAR HYPERTROPHY [None]
